FAERS Safety Report 7075522-8 (Version None)
Quarter: 2010Q4

REPORT INFORMATION
  Report Type: 
  Country: None (occurrence: None)
  Receive Date: 20101030
  Receipt Date: 20100920
  Transmission Date: 20110411
  Serious: No
  Sender: FDA-Public Use
  Company Number: US-WYE-H17685210

PATIENT
  Sex: Female
  Weight: 61.29 kg

DRUGS (3)
  1. PRISTIQ [Suspect]
     Indication: NERVOUSNESS
     Dates: start: 20100101
  2. VASOTEC [Concomitant]
  3. COREG [Concomitant]

REACTIONS (4)
  - ABDOMINAL DISTENSION [None]
  - FLATULENCE [None]
  - NAUSEA [None]
  - VOMITING [None]
